FAERS Safety Report 18320113 (Version 1)
Quarter: 2020Q3

REPORT INFORMATION
  Report Type: Report from Study
  Country: DE (occurrence: DE)
  Receive Date: 20200928
  Receipt Date: 20200928
  Transmission Date: 20201103
  Serious: Yes (Other)
  Sender: FDA-Public Use
  Company Number: GXKR2014DE001820

PATIENT
  Age: 33 Year
  Sex: Male

DRUGS (2)
  1. ZARZIO [Suspect]
     Active Substance: FILGRASTIM
     Indication: STEM CELL DONOR
     Dosage: TOTAL DOSE 2700 UG
     Route: 058
     Dates: start: 20140124
  2. ZARZIO [Suspect]
     Active Substance: FILGRASTIM
     Dosage: TOTAL DOSE 2700 UG
     Route: 058
     Dates: start: 20140128

REACTIONS (6)
  - Exercise tolerance decreased [Recovered/Resolved]
  - Bone pain [Recovered/Resolved]
  - Pelvic pain [Recovered/Resolved]
  - Arthralgia [Recovered/Resolved]
  - Epistaxis [Recovered/Resolved]
  - Thrombocytopenia [Recovered/Resolved]

NARRATIVE: CASE EVENT DATE: 20140124
